FAERS Safety Report 8992566 (Version 2)
Quarter: 2013Q1

REPORT INFORMATION
  Report Type: Spontaneous
  Country: US (occurrence: US)
  Receive Date: 20130101
  Receipt Date: 20130326
  Transmission Date: 20140127
  Serious: No
  Sender: FDA-Public Use
  Company Number: US-BIOGENIDEC-2012BI064005

PATIENT
  Sex: Female

DRUGS (3)
  1. TYSABRI [Suspect]
     Indication: MULTIPLE SCLEROSIS
     Route: 042
     Dates: start: 20120518, end: 20121212
  2. BACLOFEN [Concomitant]
  3. NARCOTICS [Concomitant]

REACTIONS (7)
  - Gait disturbance [Recovered/Resolved]
  - Muscle spasms [Not Recovered/Not Resolved]
  - Insomnia [Not Recovered/Not Resolved]
  - Somnolence [Not Recovered/Not Resolved]
  - Memory impairment [Recovered/Resolved]
  - Pain [Recovered/Resolved]
  - Multiple sclerosis [Not Recovered/Not Resolved]
